FAERS Safety Report 24968126 (Version 1)
Quarter: 2025Q1

REPORT INFORMATION
  Report Type: Spontaneous
  Country: CN (occurrence: CN)
  Receive Date: 20250214
  Receipt Date: 20250214
  Transmission Date: 20250409
  Serious: Yes (Other)
  Sender: ABBVIE
  Company Number: CN-ABBVIE-6126333

PATIENT
  Age: 87 Year
  Sex: Female
  Weight: 57 kg

DRUGS (3)
  1. VENETOCLAX [Suspect]
     Active Substance: VENETOCLAX
     Indication: Acute myeloid leukaemia
     Route: 048
     Dates: start: 20250110, end: 20250114
  2. AZACITIDINE [Concomitant]
     Active Substance: AZACITIDINE
     Indication: Leukaemia
     Route: 041
     Dates: start: 20250111, end: 20250115
  3. ZUBERITAMAB [Concomitant]
     Active Substance: ZUBERITAMAB
     Indication: Neoplasm malignant
     Route: 041
     Dates: start: 20250110, end: 20250110

REACTIONS (2)
  - Full blood count decreased [Not Recovered/Not Resolved]
  - Myelosuppression [Unknown]

NARRATIVE: CASE EVENT DATE: 20250101
